FAERS Safety Report 19449139 (Version 2)
Quarter: 2021Q2

REPORT INFORMATION
  Report Type: Spontaneous
  Country: IL (occurrence: IL)
  Receive Date: 20210622
  Receipt Date: 20210624
  Transmission Date: 20210717
  Serious: Yes (Hospitalization, Other)
  Sender: FDA-Public Use
  Company Number: IL-ROCHE-2853021

PATIENT
  Sex: Female

DRUGS (3)
  1. ALLORIL [Concomitant]
     Active Substance: ALLOPURINOL
  2. BENDAMUSTINE [Suspect]
     Active Substance: BENDAMUSTINE
     Indication: PRODUCT USED FOR UNKNOWN INDICATION
     Route: 065
  3. MABTHERA [Suspect]
     Active Substance: RITUXIMAB
     Indication: PRODUCT USED FOR UNKNOWN INDICATION
     Route: 065

REACTIONS (6)
  - Diarrhoea [Unknown]
  - Pyrexia [Unknown]
  - Pancytopenia [Unknown]
  - Hepatic function abnormal [Unknown]
  - Ill-defined disorder [Unknown]
  - Disease recurrence [Unknown]
